FAERS Safety Report 8086891-4 (Version None)
Quarter: 2012Q1

REPORT INFORMATION
  Report Type: 
  Country: None (occurrence: None)
  Receive Date: 20120128
  Receipt Date: 20110614
  Transmission Date: 20120608
  Serious: No
  Sender: FDA-Public Use
  Company Number: US-ABBOTT-11P-163-0732347-00

PATIENT
  Age: 25 Year
  Sex: Female

DRUGS (7)
  1. HUMIRA [Suspect]
     Indication: RHEUMATOID ARTHRITIS
     Dates: start: 20100201
  2. MEDROL [Concomitant]
     Indication: AUTOIMMUNE DISORDER
  3. ACETAMINOPHEN [Concomitant]
     Indication: ARTHRALGIA
     Dosage: OTC
  4. NAPROXEN [Concomitant]
     Indication: PAIN
  5. IBUPROFEN (ADVIL) [Concomitant]
     Indication: ARTHRALGIA
     Dosage: OTC
  6. PLAQUENIL [Concomitant]
     Indication: AUTOIMMUNE DISORDER
  7. NAPROXEN [Concomitant]
     Indication: INFLAMMATION

REACTIONS (2)
  - INJECTION SITE INFLAMMATION [None]
  - INJECTION SITE PAIN [None]
